FAERS Safety Report 7122811-4 (Version None)
Quarter: 2010Q4

REPORT INFORMATION
  Report Type: 
  Country: None (occurrence: None)
  Receive Date: 20101124
  Receipt Date: 20101118
  Transmission Date: 20110411
  Serious: Yes (Hospitalization)
  Sender: FDA-Public Use
  Company Number: FR-ABBOTT-10P-056-0686491-00

PATIENT
  Sex: Male

DRUGS (18)
  1. CLARITHROMYCIN [Suspect]
     Indication: RESPIRATORY TRACT INFECTION
     Dosage: DAILY DOSE 1GM
     Route: 048
     Dates: start: 20100908, end: 20101026
  2. CLARITHROMYCIN [Suspect]
     Indication: MYCOBACTERIAL INFECTION
  3. MOXIFLOXACIN HCL [Suspect]
     Indication: RESPIRATORY TRACT INFECTION
     Dosage: DAILY DOSE 400MG
     Route: 048
     Dates: start: 20100908, end: 20101026
  4. MOXIFLOXACIN HCL [Suspect]
     Indication: MYCOBACTERIAL INFECTION
  5. ANSATIPINE [Concomitant]
     Indication: RESPIRATORY TRACT INFECTION
     Dosage: DAILY DOSE 300MG
     Dates: start: 20100908, end: 20101027
  6. ANSATIPINE [Concomitant]
     Indication: MYCOBACTERIAL INFECTION
     Dates: start: 20101028
  7. DEXAMBUTOL [Concomitant]
     Indication: RESPIRATORY TRACT INFECTION
     Dosage: DAILY DOSE 1GM
     Dates: start: 20100908, end: 20101027
  8. DEXAMBUTOL [Concomitant]
     Indication: MYCOBACTERIAL INFECTION
     Dates: start: 20101028
  9. ESOMEPRAZOLE [Concomitant]
     Indication: PRODUCT USED FOR UNKNOWN INDICATION
  10. TRANXENE [Concomitant]
     Indication: PRODUCT USED FOR UNKNOWN INDICATION
  11. METHADONE [Concomitant]
     Indication: SUBSTANCE ABUSE
  12. RAMIPRIL [Concomitant]
     Indication: PRODUCT USED FOR UNKNOWN INDICATION
  13. SYMBICORT [Concomitant]
     Indication: PRODUCT USED FOR UNKNOWN INDICATION
  14. SPIRIVA [Concomitant]
     Indication: PRODUCT USED FOR UNKNOWN INDICATION
  15. TERBUTALINE SULFATE [Concomitant]
     Indication: PRODUCT USED FOR UNKNOWN INDICATION
  16. HYDROCHLOROTHIAZIDE [Concomitant]
     Indication: PRODUCT USED FOR UNKNOWN INDICATION
  17. RIMIFON [Concomitant]
     Indication: PRODUCT USED FOR UNKNOWN INDICATION
     Dates: start: 20101031
  18. INTERFERON [Concomitant]
     Indication: HEPATITIS C

REACTIONS (1)
  - RHABDOMYOLYSIS [None]
